FAERS Safety Report 23271526 (Version 2)
Quarter: 2024Q1

REPORT INFORMATION
  Report Type: Spontaneous
  Country: BE (occurrence: BE)
  Receive Date: 20231207
  Receipt Date: 20240102
  Transmission Date: 20240410
  Serious: No
  Sender: FDA-Public Use
  Company Number: BE-PFIZER INC-PV202300169040

PATIENT

DRUGS (1)
  1. ENBREL [Suspect]
     Active Substance: ETANERCEPT
     Dosage: 50 MG, UNK (ENBREL PEN 50 MG)

REACTIONS (2)
  - Device delivery system issue [Unknown]
  - Needle issue [Unknown]
